FAERS Safety Report 11509564 (Version 1)
Quarter: 2015Q3

REPORT INFORMATION
  Report Type: Spontaneous
  Country: US (occurrence: US)
  Receive Date: 20150915
  Receipt Date: 20150915
  Transmission Date: 20151125
  Serious: No
  Sender: FDA-Public Use
  Company Number: US-JNJFOC-20150701082

PATIENT
  Age: 90 Year
  Sex: Male
  Weight: 61.24 kg

DRUGS (3)
  1. PRILOSEC [Concomitant]
     Active Substance: OMEPRAZOLE MAGNESIUM
     Indication: ANTACID THERAPY
     Dosage: AS NEEDED
     Route: 065
  2. TYLENOL EXTRA STRENGTH [Suspect]
     Active Substance: ACETAMINOPHEN
     Indication: ARTHRALGIA
     Dosage: 1-2 CAPLETS, 1-5 TIMES PER DAY, FROM PAST 15 YEARS
     Route: 048
  3. TYLENOL EXTRA STRENGTH [Suspect]
     Active Substance: ACETAMINOPHEN
     Indication: BACK PAIN
     Dosage: 1-2 CAPLETS, 1-5 TIMES PER DAY, FROM PAST 15 YEARS
     Route: 048

REACTIONS (1)
  - Constipation [Not Recovered/Not Resolved]
